FAERS Safety Report 8349739-6 (Version None)
Quarter: 2012Q2

REPORT INFORMATION
  Report Type: 
  Country: None (occurrence: None)
  Receive Date: 20120510
  Receipt Date: 20120507
  Transmission Date: 20120825
  Serious: Yes (Hospitalization, Disabling)
  Sender: FDA-Public Use
  Company Number: DE-SANOFI-AVENTIS-2012SA032138

PATIENT
  Age: 71 Year
  Sex: Female
  Weight: 101 kg

DRUGS (17)
  1. TORSEMIDE [Concomitant]
     Dosage: DAILY DOSE: 1-1/2-0-1
     Route: 048
  2. RAMIPRIL [Concomitant]
     Dosage: 1-0-0
     Route: 048
  3. LEVOTHYROXINE SODIUM [Concomitant]
     Dosage: 1-0-0
     Route: 048
  4. LOVAZA [Concomitant]
     Dosage: 1-0-1
     Route: 065
  5. COLECALCIFEROL [Concomitant]
     Dosage: 0-1-0
     Route: 048
  6. MULTAQ [Suspect]
     Dosage: DAILY DOSE: 800 MG MILLGRAM(S) EVERY DAYS
     Route: 048
     Dates: start: 20100901, end: 20110101
  7. VALORON N /00628301/ [Concomitant]
     Dosage: 1DF=100/8 MG
     Route: 065
  8. OMEPRAZOLE [Concomitant]
     Dosage: 1-0-0
     Route: 048
  9. RESTEX [Concomitant]
     Dosage: 0-0-1-1
     Route: 065
  10. MARCUMAR [Concomitant]
     Dosage: BASED ON INR
     Route: 048
  11. SIMVASTATIN [Concomitant]
     Dosage: 0-0-1
     Route: 048
  12. RISEDRONATE SODIUM [Concomitant]
     Dosage: 0-1-0 (FREITAGS)
     Route: 048
  13. PREDNISOLONE [Concomitant]
     Dosage: 1-0-1
     Route: 048
     Dates: start: 20110927
  14. BERODUAL [Concomitant]
     Dosage: AS NEEDED
     Route: 049
  15. STROPHANTHIN [Concomitant]
     Dosage: 2-0-2
     Route: 048
  16. ALLOBETA [Concomitant]
     Dosage: 0-0-1
     Route: 048
  17. CITALOPRAM HYDROBROMIDE [Concomitant]
     Dosage: 1-0-1
     Route: 048

REACTIONS (2)
  - INTERSTITIAL LUNG DISEASE [None]
  - ALVEOLITIS [None]
